FAERS Safety Report 19679487 (Version 1)
Quarter: 2021Q3

REPORT INFORMATION
  Report Type: Spontaneous
  Country: CN (occurrence: CN)
  Receive Date: 20210810
  Receipt Date: 20210810
  Transmission Date: 20211014
  Serious: Yes (Death, Other)
  Sender: FDA-Public Use
  Company Number: CN-ASTELLAS-2021US030012

PATIENT
  Age: 25 Year
  Sex: Female

DRUGS (1)
  1. XOSPATA [Suspect]
     Active Substance: GILTERITINIB
     Indication: PRODUCT USED FOR UNKNOWN INDICATION
     Dosage: UNK UNK, UNKNOWN FREQ.
     Route: 048
     Dates: start: 20210701, end: 20210702

REACTIONS (1)
  - Death [Fatal]

NARRATIVE: CASE EVENT DATE: 20210702
